FAERS Safety Report 6001398-3 (Version None)
Quarter: 2008Q4

REPORT INFORMATION
  Report Type: 
  Country: None (occurrence: None)
  Receive Date: 20081215
  Receipt Date: 20081203
  Transmission Date: 20090506
  Serious: Yes (Other)
  Sender: FDA-Public Use
  Company Number: BR-ELI_LILLY_AND_COMPANY-BR200812001043

PATIENT
  Sex: Female
  Weight: 67 kg

DRUGS (12)
  1. ZYPREXA [Suspect]
     Indication: BIPOLAR DISORDER
     Dosage: 5 MG, DAILY (1/D)
     Route: 048
     Dates: start: 20080901
  2. DEPAKOTE ER [Concomitant]
     Indication: AFFECTIVE DISORDER
     Dosage: 500 MG, DAILY (1/D)
     Route: 065
  3. CLOXAZOLAM [Concomitant]
     Indication: SEDATIVE THERAPY
     Dosage: 4 MG, DAILY (1/D)
     Route: 065
  4. FENERGAN [Concomitant]
     Indication: SEDATIVE THERAPY
     Dosage: 25 MG, DAILY (1/D)
     Route: 065
  5. FLUNITRAZEPAM [Concomitant]
     Indication: INSOMNIA
     Dosage: 4 MG, DAILY (1/D)
     Route: 065
  6. AMLODIPINE W/VALSARTAN [Concomitant]
     Indication: HYPERTENSION
     Dosage: UNK, DAILY (1/D)
     Route: 065
  7. ATENOLOL [Concomitant]
     Indication: HYPERTENSION
     Dosage: 25 MG, DAILY (1/D)
     Route: 065
  8. AAS [Concomitant]
     Indication: HYPERTENSION
     Dosage: 100 MG, DAILY (1/D)
     Route: 065
  9. SIMVASTATIN [Concomitant]
     Indication: BLOOD CHOLESTEROL INCREASED
     Dosage: 20 MG, DAILY (1/D)
     Route: 065
  10. DIOSMIN [Concomitant]
     Indication: DEEP VEIN THROMBOSIS
     Dosage: 1000 MG, DAILY (1/D)
     Route: 065
  11. CALCIUM CARBONATE W/VITAMIN D /00944201/ [Concomitant]
     Indication: OSTEOPOROSIS
     Dosage: 600 MG, DAILY (1/D)
     Route: 065
  12. ALENDRONATE SODIUM [Concomitant]
     Dosage: 70 MG, WEEKLY (1/W)
     Route: 065

REACTIONS (5)
  - CONVULSION [None]
  - FALL [None]
  - OEDEMA PERIPHERAL [None]
  - THROMBOSIS [None]
  - TREMOR [None]
